FAERS Safety Report 7044956-X (Version None)
Quarter: 2010Q4

REPORT INFORMATION
  Report Type: 
  Country: None (occurrence: None)
  Receive Date: 20101014
  Receipt Date: 20101007
  Transmission Date: 20110411
  Serious: Yes (Hospitalization)
  Sender: FDA-Public Use
  Company Number: US-BRISTOL-MYERS SQUIBB COMPANY-15324809

PATIENT
  Age: 20 Year
  Sex: Male
  Weight: 58 kg

DRUGS (5)
  1. CYTOXAN [Suspect]
     Indication: NEUROBLASTOMA
     Dates: start: 20100726, end: 20100730
  2. TOPOTECAN [Suspect]
     Indication: NEUROBLASTOMA
     Dates: start: 20100726, end: 20100730
  3. LABETALOL HCL [Concomitant]
     Indication: HYPERTENSION
  4. NIFEDIPINE [Concomitant]
     Indication: HYPERTENSION
  5. DILAUDID [Concomitant]
     Indication: ABDOMINAL PAIN

REACTIONS (12)
  - COLONIC STENOSIS [None]
  - DECREASED APPETITE [None]
  - FEBRILE NEUTROPENIA [None]
  - HYPERBILIRUBINAEMIA [None]
  - HYPERGLYCAEMIA [None]
  - HYPOKALAEMIA [None]
  - HYPONATRAEMIA [None]
  - HYPOPHOSPHATAEMIA [None]
  - NEUTROPENIA [None]
  - NEUTROPENIC INFECTION [None]
  - OESOPHAGEAL PAIN [None]
  - STOMATITIS [None]
